FAERS Safety Report 13424527 (Version 1)
Quarter: 2017Q2

REPORT INFORMATION
  Report Type: Spontaneous
  Country: FR (occurrence: FR)
  Receive Date: 20170410
  Receipt Date: 20170410
  Transmission Date: 20170830
  Serious: Yes (Hospitalization)
  Sender: FDA-Public Use
  Company Number: FR-BAYER-2017-063550

PATIENT
  Age: 61 Year
  Sex: Male

DRUGS (5)
  1. CIFLOX [Suspect]
     Active Substance: CIPROFLOXACIN
     Indication: FEBRILE BONE MARROW APLASIA
     Dosage: UNK
     Route: 042
     Dates: start: 20170301, end: 20170309
  2. BACTRIM [Suspect]
     Active Substance: SULFAMETHOXAZOLE\TRIMETHOPRIM
     Indication: FEBRILE BONE MARROW APLASIA
     Dosage: 1 DF, TID
     Route: 048
     Dates: start: 20170302, end: 20170305
  3. TRIFLUCAN [Suspect]
     Active Substance: FLUCONAZOLE
     Indication: FEBRILE BONE MARROW APLASIA
     Dosage: 200 MG/5 ML, UNK
     Route: 042
     Dates: start: 20170301, end: 20170309
  4. TAZOCILLINE [Suspect]
     Active Substance: PIPERACILLIN SODIUM\TAZOBACTAM SODIUM
     Indication: FEBRILE BONE MARROW APLASIA
     Dosage: UNK
     Route: 042
     Dates: start: 20170301, end: 20170309
  5. CETIRIZINE [Concomitant]
     Active Substance: CETIRIZINE HYDROCHLORIDE
     Dosage: UNK
     Dates: start: 20170305

REACTIONS (1)
  - Toxic skin eruption [Recovering/Resolving]

NARRATIVE: CASE EVENT DATE: 20170305
